FAERS Safety Report 21868386 (Version 1)
Quarter: 2023Q1

REPORT INFORMATION
  Report Type: Spontaneous
  Country: US (occurrence: US)
  Receive Date: 20230116
  Receipt Date: 20230116
  Transmission Date: 20230417
  Serious: No
  Sender: FDA-Public Use
  Company Number: US-JNJFOC-20230127604

PATIENT
  Sex: Female

DRUGS (1)
  1. SIMPONI ARIA [Suspect]
     Active Substance: GOLIMUMAB
     Indication: Product used for unknown indication
     Route: 041

REACTIONS (6)
  - Oropharyngeal pain [Unknown]
  - Lacrimation increased [Unknown]
  - Respiratory tract congestion [Unknown]
  - Rash [Unknown]
  - Pruritus [Unknown]
  - Pollakiuria [Unknown]
